FAERS Safety Report 10752372 (Version 1)
Quarter: 2015Q1

REPORT INFORMATION
  Report Type: Spontaneous
  Country: DE (occurrence: DE)
  Receive Date: 20150130
  Receipt Date: 20150130
  Transmission Date: 20150721
  Serious: Yes (Other)
  Sender: FDA-Public Use
  Company Number: DE-TEVA-537467GER

PATIENT
  Age: 30 Year
  Sex: Female
  Weight: 103 kg

DRUGS (8)
  1. FOLIC ACID RATIOPHARM [Concomitant]
     Indication: PROPHYLAXIS OF NEURAL TUBE DEFECT
     Dosage: 5 MILLIGRAM DAILY;
     Route: 048
     Dates: start: 20130906, end: 20140421
  2. L-THYROXIN [Concomitant]
     Active Substance: LEVOTHYROXINE SODIUM
     Indication: AUTOIMMUNE THYROIDITIS
     Dosage: 175 MICROGRAM DAILY;
     Route: 048
     Dates: start: 20130906, end: 20140421
  3. UTROGEST [Concomitant]
     Active Substance: PROGESTERONE
     Indication: ASSISTED FERTILISATION
     Route: 067
  4. THYBON [Concomitant]
     Indication: AUTOIMMUNE THYROIDITIS
     Dosage: 10 MICROGRAM DAILY;
     Route: 048
     Dates: start: 20130906, end: 20131104
  5. ASS 100 [Concomitant]
     Active Substance: ASPIRIN
     Indication: ASSISTED FERTILISATION
     Route: 048
     Dates: start: 20130906, end: 20140421
  6. SERTRALINE [Suspect]
     Active Substance: SERTRALINE HYDROCHLORIDE
     Indication: OBSESSIVE-COMPULSIVE DISORDER
     Dosage: 150 MILLIGRAM DAILY;
     Route: 048
     Dates: start: 20130906, end: 20140421
  7. PREDNISOLON [Suspect]
     Active Substance: PREDNISOLONE
     Indication: ASSISTED FERTILISATION
     Dosage: 15 MILLIGRAM DAILY;
     Route: 048
     Dates: start: 20130906, end: 20140421
  8. FRAGMIN [Concomitant]
     Active Substance: DALTEPARIN SODIUM
     Indication: ASSISTED FERTILISATION
     Dosage: 5000 IU (INTERNATIONAL UNIT) DAILY;
     Route: 058

REACTIONS (5)
  - Gestational diabetes [Unknown]
  - Kidney infection [Unknown]
  - Premature delivery [Recovered/Resolved]
  - Premature rupture of membranes [Recovered/Resolved]
  - Cystitis [Unknown]
